FAERS Safety Report 8934168 (Version 1)
Quarter: 2012Q4

REPORT INFORMATION
  Report Type: 
  Country: GB (occurrence: GB)
  Receive Date: 20121129
  Receipt Date: 20121129
  Transmission Date: 20130627
  Serious: Yes (Hospitalization, Other)
  Sender: FDA-Public Use
  Company Number: GB-PFIZER INC-2012296712

PATIENT
  Age: 71 Year
  Sex: Male
  Weight: 86 kg

DRUGS (15)
  1. GENOTROPIN [Suspect]
     Dosage: 0.4 mg, 1x/day,7 injections/week
     Route: 058
     Dates: start: 20040205
  2. ACETYLSALICYLIC ACID [Concomitant]
     Indication: PAIN
     Dosage: UNK
     Dates: start: 19910726
  3. THYROXINE [Concomitant]
     Indication: HYPOTHYROIDISM
     Dosage: UNK
     Dates: start: 19910726
  4. HYDROCORTISONE [Concomitant]
     Indication: ACTH DECREASED
     Dosage: UNK
     Dates: start: 19910726
  5. TESTOSTERONE [Concomitant]
     Indication: LUTEINIZING HORMONE DEFICIENCY
     Dosage: UNK
     Dates: start: 19911001
  6. TESTOSTERONE [Concomitant]
     Indication: FOLLICLE-STIMULATING HORMONE DEFICIENCY
  7. TESTOSTERONE [Concomitant]
     Indication: TESTICULAR HYPOGONADISM
  8. METFORMIN [Concomitant]
     Indication: IDDM
     Dosage: UNK
     Dates: start: 20021129
  9. METFORMIN [Concomitant]
     Indication: NIDDM
  10. SIMVASTATIN [Concomitant]
     Indication: HYPERCHOLESTEROLAEMIA
     Dosage: UNK
     Dates: start: 20021129
  11. AMITRIPTYLINE [Concomitant]
     Indication: DEPRESSIVE ILLNESS
     Dosage: UNK
     Dates: start: 20030403
  12. AMITRIPTYLINE [Concomitant]
     Indication: SEDATION
  13. PROCHLORPERAZINE [Concomitant]
     Indication: NAUSEA
     Dosage: UNK
     Dates: start: 20030403
  14. PROCHLORPERAZINE [Concomitant]
     Indication: VERTIGO
  15. PROCHLORPERAZINE [Concomitant]
     Indication: LABYRINTHINE DISORDER

REACTIONS (1)
  - Myocardial infarction [Unknown]
